FAERS Safety Report 21957987 (Version 2)
Quarter: 2023Q1

REPORT INFORMATION
  Report Type: Report from Study
  Country: US (occurrence: US)
  Receive Date: 20230206
  Receipt Date: 20230207
  Transmission Date: 20230418
  Serious: Yes (Other)
  Sender: FDA-Public Use
  Company Number: US-ABBVIE-4258504

PATIENT
  Sex: Female

DRUGS (1)
  1. HUMIRA [Suspect]
     Active Substance: ADALIMUMAB
     Indication: Crohn^s disease
     Route: 058
     Dates: start: 20221212

REACTIONS (4)
  - Peripheral artery stent insertion [Recovering/Resolving]
  - Gait disturbance [Unknown]
  - Wound complication [Not Recovered/Not Resolved]
  - Discouragement [Not Recovered/Not Resolved]
